FAERS Safety Report 24694696 (Version 1)
Quarter: 2024Q4

REPORT INFORMATION
  Report Type: Spontaneous
  Country: IT (occurrence: IT)
  Receive Date: 20241204
  Receipt Date: 20241204
  Transmission Date: 20250115
  Serious: Yes (Other)
  Sender: GLAND PHARMA LTD
  Company Number: IT-GLANDPHARMA-IT-2024GLNLIT01067

PATIENT
  Age: 83 Year
  Sex: Male

DRUGS (4)
  1. OXALIPLATIN [Suspect]
     Active Substance: OXALIPLATIN
     Indication: Colorectal cancer metastatic
     Route: 065
     Dates: start: 201806, end: 201812
  2. FLUOROURACIL [Suspect]
     Active Substance: FLUOROURACIL
     Indication: Colorectal cancer metastatic
     Route: 065
     Dates: start: 201806, end: 201812
  3. LEUCOVORIN [Suspect]
     Active Substance: LEUCOVORIN\LEUCOVORIN CALCIUM
     Indication: Colorectal cancer metastatic
     Route: 065
     Dates: start: 201806, end: 201812
  4. PANITUMUMAB [Suspect]
     Active Substance: PANITUMUMAB
     Indication: Colorectal cancer metastatic
     Route: 065
     Dates: start: 201806, end: 201812

REACTIONS (4)
  - Rash maculo-papular [Recovering/Resolving]
  - Paronychia [Recovering/Resolving]
  - Haematotoxicity [Unknown]
  - Conjunctivitis [Recovering/Resolving]
